FAERS Safety Report 7560044-8 (Version None)
Quarter: 2011Q2

REPORT INFORMATION
  Report Type: 
  Country: None (occurrence: None)
  Receive Date: 20110614
  Receipt Date: 20110530
  Transmission Date: 20111010
  Serious: Yes (Hospitalization)
  Sender: FDA-Public Use
  Company Number: TCI2011A02376

PATIENT
  Age: 62 Year
  Sex: Male

DRUGS (9)
  1. CALCIUM CHANNEL BLOCKERS [Concomitant]
  2. ACTOS [Suspect]
     Indication: TYPE 2 DIABETES MELLITUS
     Dosage: 15 MG (15 MG, 1 D) PER ORAL
     Route: 048
     Dates: start: 20080311, end: 20101115
  3. SULFONAMIDE, UREA DERIVATIVES [Concomitant]
  4. ANTITHROMBOTIC AGENTS [Concomitant]
  5. ALPHA GLUCOSIDASE INHIBITORS [Concomitant]
  6. EICOSAPENTAENOIC ACID [Concomitant]
  7. ANGIOTENSIN II ANTAGONISTS [Concomitant]
  8. HMG COA REDUCTASE INHIBITORS [Concomitant]
  9. BIGUANIDES [Concomitant]

REACTIONS (1)
  - LACUNAR INFARCTION [None]
